FAERS Safety Report 13738063 (Version 1)
Quarter: 2017Q3

REPORT INFORMATION
  Report Type: Spontaneous
  Country: FR (occurrence: FR)
  Receive Date: 20170710
  Receipt Date: 20170710
  Transmission Date: 20171127
  Serious: Yes (Hospitalization, Other)
  Sender: FDA-Public Use
  Company Number: FR-PFIZER INC-2017293112

PATIENT
  Age: 59 Year
  Sex: Male

DRUGS (4)
  1. LYRICA [Suspect]
     Active Substance: PREGABALIN
     Dosage: 100 MG, 1X/DAY
     Route: 048
  2. ZYDELIG [Interacting]
     Active Substance: IDELALISIB
     Indication: B-CELL LYMPHOMA
     Dosage: 150 MG, 2X/DAY
     Route: 048
     Dates: start: 20151005, end: 20170323
  3. BACTRIM [Interacting]
     Active Substance: SULFAMETHOXAZOLE\TRIMETHOPRIM
     Indication: OPPORTUNISTIC INFECTION PROPHYLAXIS
     Dosage: 1 DF, THRICE WEEKLY
     Route: 048
  4. ZELITREX [Interacting]
     Active Substance: VALACYCLOVIR HYDROCHLORIDE
     Indication: OPPORTUNISTIC INFECTION PROPHYLAXIS
     Dosage: 500 MG, 1X/DAY
     Route: 048

REACTIONS (7)
  - Lung infiltration [Not Recovered/Not Resolved]
  - Drug interaction [Recovered/Resolved]
  - Lung infection [Recovered/Resolved]
  - Organising pneumonia [Not Recovered/Not Resolved]
  - Klebsiella infection [Unknown]
  - Staphylococcal sepsis [Recovered/Resolved]
  - Toxicity to various agents [Unknown]

NARRATIVE: CASE EVENT DATE: 20170228
